FAERS Safety Report 17726947 (Version 1)
Quarter: 2020Q2

REPORT INFORMATION
  Report Type: Spontaneous
  Country: US (occurrence: US)
  Receive Date: 20200430
  Receipt Date: 20200430
  Transmission Date: 20200714
  Serious: No
  Sender: FDA-Public Use
  Company Number: US-009507513-2004USA003426

PATIENT
  Age: 25 Year
  Sex: Male

DRUGS (2)
  1. COZAAR [Suspect]
     Active Substance: LOSARTAN POTASSIUM
     Indication: CONNECTIVE TISSUE DISORDER
     Dosage: 50 MILLIGRAM, QD
  2. ETANERCEPT [Concomitant]
     Active Substance: ETANERCEPT
     Indication: CONNECTIVE TISSUE DISORDER
     Dosage: 50 MILLIGRAM, QW
     Route: 058

REACTIONS (1)
  - Off label use [Unknown]
